FAERS Safety Report 4285575-8 (Version None)
Quarter: 2004Q1

REPORT INFORMATION
  Report Type: 
  Country: None (occurrence: None)
  Receive Date: 20040204
  Receipt Date: 20040116
  Transmission Date: 20041129
  Serious: Yes (Life-Threatening)
  Sender: FDA-Public Use
  Company Number: DSA-23909-2004

PATIENT
  Age: 74 Year
  Sex: Male

DRUGS (8)
  1. DILTIAZEM [Suspect]
     Indication: HYPERTENSION
     Dosage: 200 MG QD PO
     Route: 048
     Dates: end: 20031125
  2. ATENOLOL [Suspect]
     Indication: MYOCARDIAL INFARCTION
     Dosage: 25 MG QD PO
     Route: 048
     Dates: start: 20031125
  3. TIMOLOL MALEATE [Suspect]
     Indication: GLAUCOMA
     Dosage: 0.3 PERCENT BID EY
  4. ASPIRIN [Concomitant]
  5. IRBESARTAN [Concomitant]
  6. SIMVASTATIN [Concomitant]
  7. INSULIN NORDISK MIXTARD (PORK) [Concomitant]
  8. BRIMONIDINE [Concomitant]

REACTIONS (2)
  - BRADYCARDIA [None]
  - CARDIAC PACEMAKER INSERTION [None]
